FAERS Safety Report 9202764 (Version 4)
Quarter: 2020Q3

REPORT INFORMATION
  Report Type: Spontaneous
  Country: GB (occurrence: GB)
  Receive Date: 20130401
  Receipt Date: 20200924
  Transmission Date: 20201103
  Serious: Yes (Other)
  Sender: FDA-Public Use
  Company Number: GB-MYLANLABS-2013S1006420

PATIENT
  Age: 73 Year
  Sex: Male

DRUGS (9)
  1. ADCAL D3 [Interacting]
     Active Substance: CALCIUM CARBONATE\CHOLECALCIFEROL
     Indication: OSTEOPOROSIS
     Dosage: 1 DF,BID
     Dates: start: 200803
  2. BENDROFLUMETHIAZIDE [Concomitant]
     Active Substance: BENDROFLUMETHIAZIDE
     Indication: PRODUCT USED FOR UNKNOWN INDICATION
     Dosage: 2.5 MG,QD
  3. ASPARTAME [Interacting]
     Active Substance: ASPARTAME
     Indication: TOTAL BILE ACIDS INCREASED
     Dosage: UNK
  4. QUESTRAN [Interacting]
     Active Substance: CHOLESTYRAMINE
     Dosage: 1 DF,QD
     Route: 048
     Dates: start: 20100505
  5. VITAMIN B12 [Concomitant]
     Active Substance: CYANOCOBALAMIN
     Dosage: UNK
  6. ALENDRONATE [Suspect]
     Active Substance: ALENDRONATE SODIUM
     Indication: OSTEOPOROSIS
     Dosage: 1 DF,QW
     Dates: start: 200803
  7. QUESTRAN [Interacting]
     Active Substance: CHOLESTYRAMINE
     Indication: PRODUCT USED FOR UNKNOWN INDICATION
     Dosage: 1 DF = 4 SACHETS DURATION: APPROX 30 YEARS
     Route: 048
     Dates: start: 1990, end: 2010
  8. CODEINE [Concomitant]
     Active Substance: CODEINE
     Indication: PRODUCT USED FOR UNKNOWN INDICATION
     Dosage: 30 MG,UNK
  9. COLOFAC [Suspect]
     Active Substance: MEBEVERINE HYDROCHLORIDE
     Indication: GASTROINTESTINAL PAIN
     Dosage: 135 MG,TID

REACTIONS (5)
  - Condition aggravated [Not Recovered/Not Resolved]
  - Nephrolithiasis [Unknown]
  - Drug interaction [Unknown]
  - Drug ineffective [Unknown]
  - Hypertension [Unknown]

NARRATIVE: CASE EVENT DATE: 200803
